FAERS Safety Report 10540763 (Version 1)
Quarter: 2014Q4

REPORT INFORMATION
  Report Type: Spontaneous
  Country: US (occurrence: None)
  Receive Date: 20141023
  Receipt Date: 20141023
  Transmission Date: 20150529
  Serious: Yes (Life-Threatening, Disabling, Other)
  Sender: FDA-Public Use
  Company Number: None

PATIENT
  Age: 55 Year
  Sex: Female
  Weight: 49.9 kg

DRUGS (1)
  1. VIIBRYD [Suspect]
     Active Substance: VILAZODONE HYDROCHLORIDE
     Indication: DEPRESSION
     Dosage: TAKEN BY MOUTH

REACTIONS (9)
  - Parasomnia [None]
  - Sleep paralysis [None]
  - Amnesia [None]
  - Hypnagogic hallucination [None]
  - Seizure [None]
  - Sleep apnoea syndrome [None]
  - Insomnia [None]
  - Loss of consciousness [None]
  - Tinnitus [None]
